FAERS Safety Report 9570315 (Version 1)
Quarter: 2013Q3

REPORT INFORMATION
  Report Type: Spontaneous
  Country: US (occurrence: US)
  Receive Date: 20130930
  Receipt Date: 20130930
  Transmission Date: 20140515
  Serious: No
  Sender: FDA-Public Use
  Company Number: US-AMGEN-USASP2013063854

PATIENT
  Age: 55 Year
  Sex: Female

DRUGS (10)
  1. ENBREL [Suspect]
     Indication: PRODUCT USED FOR UNKNOWN INDICATION
     Dosage: 50 MG, QWK
     Route: 058
  2. PLAQUENIL                          /00072602/ [Concomitant]
     Dosage: 200 MG, UNK
  3. METHOTREXATE [Concomitant]
     Dosage: 20 MG, UNK
  4. FOLIC ACID [Concomitant]
     Dosage: 5 MG, UNK
  5. VITAMIN D3 [Concomitant]
     Dosage: 2000 UNIT, UNK
  6. KRILL OIL [Concomitant]
     Dosage: 300 MG, UNK
  7. CALCIUM [Concomitant]
     Dosage: 500 UNK, UNK
  8. MULTIPLE VITAMINS [Concomitant]
     Dosage: UNK
  9. FLONASE                            /00908302/ [Concomitant]
     Dosage: 0.05%, UNK
  10. CLARITIN                           /00413701/ [Concomitant]
     Dosage: 5 MG, UNK

REACTIONS (2)
  - Fungal infection [Recovered/Resolved]
  - Sinusitis [Recovered/Resolved]
